FAERS Safety Report 7570100-6 (Version None)
Quarter: 2011Q2

REPORT INFORMATION
  Report Type: 
  Country: None (occurrence: None)
  Receive Date: 20110525
  Receipt Date: 20110325
  Transmission Date: 20111010
  Serious: No
  Sender: FDA-Public Use
  Company Number: 325736

PATIENT
  Sex: Female

DRUGS (1)
  1. VICTOZA [Suspect]
     Indication: PRODUCT USED FOR UNKNOWN INDICATION
     Dosage: 9 CLICKS, SUBCUTANEOUS
     Route: 058

REACTIONS (4)
  - FLATULENCE [None]
  - ERUCTATION [None]
  - NAUSEA [None]
  - DYSPEPSIA [None]
